FAERS Safety Report 21658776 (Version 1)
Quarter: 2022Q4

REPORT INFORMATION
  Report Type: Spontaneous
  Country: US (occurrence: None)
  Receive Date: 20221128
  Receipt Date: 20221128
  Transmission Date: 20230113
  Serious: Yes (Hospitalization, Disabling)
  Sender: FDA-Public Use
  Company Number: None

PATIENT
  Age: 79 Year
  Sex: Female
  Weight: 66.68 kg

DRUGS (1)
  1. PROLIA [Suspect]
     Active Substance: DENOSUMAB
     Indication: Bone disorder
     Dosage: OTHER FREQUENCY : 2 TIMES YEARLY;?

REACTIONS (6)
  - Arthralgia [None]
  - Pain in extremity [None]
  - Gait inability [None]
  - Gait disturbance [None]
  - Walking aid user [None]
  - Walking aid user [None]

NARRATIVE: CASE EVENT DATE: 20220502
